FAERS Safety Report 5759954-3 (Version None)
Quarter: 2008Q2

REPORT INFORMATION
  Report Type: 
  Country: None (occurrence: None)
  Receive Date: 20080605
  Receipt Date: 20080527
  Transmission Date: 20081010
  Serious: Yes (Other)
  Sender: FDA-Public Use
  Company Number: GB-ROCHE-566790

PATIENT
  Sex: Female
  Weight: 74 kg

DRUGS (4)
  1. XENICAL [Suspect]
     Indication: OBESITY
     Route: 048
     Dates: start: 20060101
  2. XENICAL [Suspect]
     Route: 048
     Dates: start: 20080219, end: 20080222
  3. XENICAL [Suspect]
     Route: 048
     Dates: start: 20080520
  4. UNSPECIFIED DRUG [Concomitant]
     Route: 048

REACTIONS (1)
  - INTRACRANIAL ANEURYSM [None]
